FAERS Safety Report 5375423-7 (Version None)
Quarter: 2007Q2

REPORT INFORMATION
  Report Type: 
  Country: None (occurrence: None)
  Receive Date: 20070629
  Receipt Date: 20070618
  Transmission Date: 20071010
  Serious: Yes (Other)
  Sender: FDA-Public Use
  Company Number: US-PFIZER INC-2007040020

PATIENT
  Sex: Female

DRUGS (3)
  1. CHANTIX [Suspect]
  2. LIPITOR [Suspect]
  3. CAFFEINE [Suspect]

REACTIONS (6)
  - ANXIETY [None]
  - CONSTIPATION [None]
  - DISTURBANCE IN ATTENTION [None]
  - FLATULENCE [None]
  - MEMORY IMPAIRMENT [None]
  - SOMNOLENCE [None]
